FAERS Safety Report 6657770-1 (Version None)
Quarter: 2010Q1

REPORT INFORMATION
  Report Type: 
  Country: None (occurrence: None)
  Receive Date: 20100330
  Receipt Date: 20100209
  Transmission Date: 20100710
  Serious: Yes (Death)
  Sender: FDA-Public Use
  Company Number: US-TYCO HEALTHCARE/MALLINCKRODT-T201000604

PATIENT
  Sex: Male

DRUGS (4)
  1. METHADOSE [Suspect]
     Dosage: UNK
  2. LORTAB [Suspect]
     Dosage: UNK
  3. OXYCONTIN [Suspect]
     Dosage: UNK
  4. XANAX [Suspect]
     Dosage: UNK

REACTIONS (2)
  - DEATH [None]
  - DRUG DIVERSION [None]
